FAERS Safety Report 6770457-X (Version None)
Quarter: 2010Q2

REPORT INFORMATION
  Report Type: 
  Country: None (occurrence: None)
  Receive Date: 20100608
  Receipt Date: 20100526
  Transmission Date: 20101027
  Serious: Yes (Hospitalization)
  Sender: FDA-Public Use
  Company Number: US-WYE-H15323110

PATIENT
  Age: 46 Year
  Sex: Female
  Weight: 72.64 kg

DRUGS (6)
  1. LORATADINE AND PSEUDOEPHEDRINE SULFATE [Suspect]
     Indication: RHINITIS
     Dosage: 1 TABLET  1X PER 12 HR, ORAL
     Route: 048
     Dates: start: 20100316, end: 20100331
  2. METFORMIN HCL [Concomitant]
  3. SIMVASTATIN [Concomitant]
  4. HYZAAR [Concomitant]
  5. AMLODIPINE [Concomitant]
  6. ASPIRIN [Concomitant]

REACTIONS (14)
  - ABASIA [None]
  - AMNESIA [None]
  - CEREBROVASCULAR ACCIDENT [None]
  - DECREASED APPETITE [None]
  - DRY MOUTH [None]
  - DYSURIA [None]
  - HEART RATE INCREASED [None]
  - HYPERSENSITIVITY [None]
  - INSOMNIA [None]
  - MOOD ALTERED [None]
  - RASH [None]
  - RESTLESSNESS [None]
  - SENSATION OF HEAVINESS [None]
  - WEIGHT DECREASED [None]
